FAERS Safety Report 18747159 (Version 1)
Quarter: 2021Q1

REPORT INFORMATION
  Report Type: Spontaneous
  Country: US (occurrence: US)
  Receive Date: 20210115
  Receipt Date: 20210115
  Transmission Date: 20210419
  Serious: Yes (Death)
  Sender: FDA-Public Use
  Company Number: US-CELGENEUS-USA-20210103096

PATIENT
  Age: 79 Year
  Sex: Male

DRUGS (2)
  1. REVLIMID [Suspect]
     Active Substance: LENALIDOMIDE
     Indication: MYELODYSPLASTIC SYNDROME
     Dosage: 2.5 MILLIGRAM
     Route: 048
     Dates: start: 20200813, end: 20210103
  2. REVLIMID [Suspect]
     Active Substance: LENALIDOMIDE
     Indication: NEOPLASM MALIGNANT

REACTIONS (1)
  - Death [Fatal]

NARRATIVE: CASE EVENT DATE: 20210103
